FAERS Safety Report 14302822 (Version 2)
Quarter: 2017Q4

REPORT INFORMATION
  Report Type: Not Available
  Country: None (occurrence: US)
  Receive Date: 20171219
  Receipt Date: 20171219
  Transmission Date: 20180321
  Serious: No
  Sender: FDA-Public Use
  Company Number: US-AKORN-50744

PATIENT
  Sex: Female

DRUGS (1)
  1. DORZOLAMIDE HCI-TIMOLOL MALEATE SOLUTION [Suspect]
     Active Substance: DORZOLAMIDE HYDROCHLORIDE\TIMOLOL MALEATE

REACTIONS (2)
  - Eye pruritus [None]
  - Ocular hyperaemia [None]
